FAERS Safety Report 5949902-5 (Version None)
Quarter: 2008Q4

REPORT INFORMATION
  Report Type: 
  Country: None (occurrence: None)
  Receive Date: 20081112
  Receipt Date: 20081029
  Transmission Date: 20090506
  Serious: Yes (Hospitalization)
  Sender: FDA-Public Use
  Company Number: FR-ELI_LILLY_AND_COMPANY-FR200810006887

PATIENT
  Sex: Male

DRUGS (4)
  1. ZYPREXA [Suspect]
     Dosage: 7.5 MG, 2/D
     Route: 048
     Dates: start: 20080209, end: 20080507
  2. DEPAMIDE [Concomitant]
     Dates: start: 20080206
  3. TRANXENE [Concomitant]
     Dates: start: 20080212
  4. TERCIAN [Concomitant]
     Dates: start: 20080218

REACTIONS (4)
  - DISEASE RECURRENCE [None]
  - HYPERCHOLESTEROLAEMIA [None]
  - HYPERGLYCAEMIA [None]
  - WEIGHT INCREASED [None]
